FAERS Safety Report 8321629-4 (Version None)
Quarter: 2012Q2

REPORT INFORMATION
  Report Type: 
  Country: None (occurrence: None)
  Receive Date: 20120430
  Receipt Date: 20091022
  Transmission Date: 20120825
  Serious: No
  Sender: FDA-Public Use
  Company Number: US-TEVA-2009011800

PATIENT
  Sex: Male
  Weight: 86.26 kg

DRUGS (15)
  1. HYDROCODONE [Concomitant]
     Dates: start: 20070101
  2. LISINOPRIL [Concomitant]
     Dates: start: 20060101
  3. FUROSEMIDE [Concomitant]
     Dates: start: 20070101
  4. ACIPHEX [Concomitant]
     Dates: start: 20040101
  5. NUVIGIL [Suspect]
     Route: 048
     Dates: start: 20091022
  6. CELEXA [Concomitant]
     Dates: start: 20090401
  7. METHADONE HCL [Concomitant]
     Dates: start: 20081001
  8. TEGRETOL [Concomitant]
     Dates: start: 19890101
  9. CRESTOR [Concomitant]
     Dates: start: 20070101
  10. METFORMIN HCL [Concomitant]
     Dates: start: 20060101
  11. BUSPIRONE HCL [Concomitant]
     Dates: start: 20070101
  12. SYNTHROID [Concomitant]
     Dates: start: 20040101
  13. XANAX [Concomitant]
     Dates: start: 19890101
  14. NUVIGIL [Suspect]
     Indication: MULTIPLE SCLEROSIS
     Dosage: 150 MILLIGRAM;
     Route: 048
     Dates: start: 20091021, end: 20091021
  15. LANTUS [Concomitant]
     Dates: start: 20060101

REACTIONS (1)
  - DRUG INEFFECTIVE FOR UNAPPROVED INDICATION [None]
